FAERS Safety Report 23860352 (Version 2)
Quarter: 2025Q1

REPORT INFORMATION
  Report Type: Report from Study
  Country: US (occurrence: US)
  Receive Date: 20240515
  Receipt Date: 20250220
  Transmission Date: 20250408
  Serious: Yes (Hospitalization, Other)
  Sender: ABBVIE
  Company Number: US-ABBVIE-5760573

PATIENT
  Age: 76 Year
  Sex: Male

DRUGS (1)
  1. CREON [Suspect]
     Active Substance: PANCRELIPASE AMYLASE\PANCRELIPASE LIPASE\PANCRELIPASE PROTEASE
     Indication: Product used for unknown indication
     Route: 048
     Dates: start: 20240115

REACTIONS (3)
  - Chemotherapy [Not Recovered/Not Resolved]
  - Internal haemorrhage [Unknown]
  - Pancreaticoduodenectomy [Unknown]

NARRATIVE: CASE EVENT DATE: 20240101
